FAERS Safety Report 15843358 (Version 2)
Quarter: 2019Q2

REPORT INFORMATION
  Report Type: Spontaneous
  Country: JP (occurrence: JP)
  Receive Date: 20190118
  Receipt Date: 20190415
  Transmission Date: 20190711
  Serious: Yes (Death, Other)
  Sender: FDA-Public Use
  Company Number: JP-PFIZER INC-2018395884

PATIENT
  Age: 87 Year
  Sex: Female
  Weight: 73.7 kg

DRUGS (71)
  1. FUTHAN [Concomitant]
     Active Substance: NAFAMOSTAT MESYLATE
     Dosage: UNK
     Route: 041
     Dates: start: 20180918, end: 20180925
  2. FENTANYL INJECTION [Concomitant]
     Active Substance: FENTANYL
     Dosage: UNK
     Route: 041
     Dates: start: 20180920, end: 20180920
  3. LASIX [Concomitant]
     Active Substance: FUROSEMIDE
     Dosage: UNK
     Route: 042
     Dates: start: 20180917, end: 20180930
  4. PRECEDEX [Concomitant]
     Active Substance: DEXMEDETOMIDINE HYDROCHLORIDE
     Dosage: UNK
     Route: 041
     Dates: start: 20180917, end: 20180917
  5. PRECEDEX [Concomitant]
     Active Substance: DEXMEDETOMIDINE HYDROCHLORIDE
     Dosage: UNK
     Route: 041
     Dates: start: 20180927, end: 20180930
  6. CEFMETAZOLE SODIUM [Concomitant]
     Active Substance: CEFMETAZOLE SODIUM
     Dosage: UNK
     Route: 041
     Dates: start: 20180917, end: 20180928
  7. ISOSORBIDE MONONITRATE. [Concomitant]
     Active Substance: ISOSORBIDE MONONITRATE
     Dosage: UNK
     Route: 048
     Dates: start: 20180925, end: 20180930
  8. SENNOSIDE A+B CALCIUM [Concomitant]
     Active Substance: SENNOSIDES A AND B
     Indication: CONSTIPATION
     Dosage: UNK UNK, AS NEEDED
     Route: 048
     Dates: start: 20180921, end: 20180921
  9. MOSAPRIDE CITRATE [Concomitant]
     Active Substance: MOSAPRIDE CITRATE
     Dosage: UNK
     Route: 048
     Dates: start: 20180926, end: 20180930
  10. ISOTONIC SODIUM CHLORIDE SOLUTION KIT H [Concomitant]
     Dosage: UNK
     Route: 041
     Dates: start: 20180917, end: 20180928
  11. BFLUID [Concomitant]
     Active Substance: AMINO ACIDS\DEXTROSE\ELECTROLYTES NOS\VITAMINS
     Dosage: UNK
     Route: 041
     Dates: start: 20180927, end: 20180930
  12. GLUCOSE [Concomitant]
     Active Substance: DEXTROSE
     Dosage: UNK
     Route: 041
     Dates: start: 20180929, end: 20180930
  13. ACELIO BAG FOR INTRAVENOUS INJECTION [Concomitant]
     Dosage: UNK
     Route: 041
     Dates: start: 20180917, end: 20180918
  14. VENOGLOBULIN IH [Concomitant]
     Active Substance: HUMAN IMMUNOGLOBULIN G
     Dosage: UNK
     Route: 041
     Dates: start: 20180918, end: 20180920
  15. TSUMURA JUZENTAIHOTO EXTRACT GRANULES FOR ETHICAL USE [Concomitant]
     Dosage: UNK
     Route: 048
     Dates: start: 20180920, end: 20180930
  16. NICORANDIL [Concomitant]
     Active Substance: NICORANDIL
     Dosage: UNK
     Route: 048
     Dates: start: 20180925, end: 20180930
  17. KETOPROFEN. [Concomitant]
     Active Substance: KETOPROFEN
     Dosage: UNK
     Route: 061
     Dates: start: 20180917, end: 20180917
  18. VASOLAN [ISOXSUPRINE HYDROCHLORIDE] [Concomitant]
     Dosage: UNK
     Dates: start: 20180917, end: 20180925
  19. AMLODIPINE [Concomitant]
     Active Substance: AMLODIPINE BESYLATE
     Dosage: UNK
     Dates: start: 20180917, end: 20180925
  20. LIPOVAS [SIMVASTATIN] [Concomitant]
     Dosage: UNK
     Dates: start: 20180917, end: 20180925
  21. FENTANYL INJECTION [Concomitant]
     Active Substance: FENTANYL
     Dosage: UNK
     Route: 041
     Dates: start: 20180918, end: 20180918
  22. FENTANYL INJECTION [Concomitant]
     Active Substance: FENTANYL
     Dosage: UNK
     Route: 041
     Dates: start: 20180927, end: 20180927
  23. PRIMPERAN INJECTION [Concomitant]
     Dosage: UNK
     Route: 042
     Dates: start: 20180924, end: 20180924
  24. SODIUM CHLORIDE. [Concomitant]
     Active Substance: SODIUM CHLORIDE
     Dosage: UNK
     Route: 042
     Dates: start: 20180918, end: 20180921
  25. ACELIO BAG FOR INTRAVENOUS INJECTION [Concomitant]
     Dosage: UNK
     Route: 041
     Dates: start: 20180922, end: 20180922
  26. MEROPENEM. [Concomitant]
     Active Substance: MEROPENEM
     Dosage: UNK
     Route: 041
     Dates: start: 20180928, end: 20180930
  27. XARELTO [Concomitant]
     Active Substance: RIVAROXABAN
     Dosage: UNK
     Route: 048
     Dates: start: 20180925, end: 20180930
  28. XYLOCAINE HYDROCHLORIDE [Concomitant]
     Active Substance: LIDOCAINE HYDROCHLORIDE
     Dosage: UNK
     Route: 061
     Dates: start: 20180918, end: 20180919
  29. PRIMPERAN INJECTION [Concomitant]
     Dosage: UNK
     Route: 042
     Dates: start: 20180926, end: 20180926
  30. GLUCOSE [Concomitant]
     Active Substance: DEXTROSE
     Dosage: UNK
     Route: 042
     Dates: start: 20180921, end: 20180921
  31. OMEPRAZOLE FOR INJECTION [Concomitant]
     Active Substance: OMEPRAZOLE
     Dosage: UNK
     Route: 042
     Dates: start: 20180919, end: 20180921
  32. NEUART [Concomitant]
     Active Substance: ANTITHROMBIN III HUMAN
     Dosage: UNK
     Route: 041
     Dates: start: 20180917, end: 20180919
  33. ACELIO BAG FOR INTRAVENOUS INJECTION [Concomitant]
     Dosage: UNK
     Route: 041
     Dates: start: 20180924, end: 20180925
  34. CALONAL FINE GRAN. [Concomitant]
     Dosage: UNK
     Route: 048
     Dates: start: 20180925, end: 20180930
  35. TSUMURA SAIREITO EXTRACT GRANULES FOR ETHICAL USE [Concomitant]
     Dosage: UNK
     Route: 048
     Dates: start: 20180928, end: 20180930
  36. NORMONAL [Concomitant]
     Dosage: UNK
     Route: 048
     Dates: start: 20180927, end: 20180930
  37. BIOFERMLN-R POWDER [Concomitant]
     Dosage: UNK
     Route: 048
     Dates: start: 20180917, end: 20180930
  38. FUROSEMIDE. [Concomitant]
     Active Substance: FUROSEMIDE
     Dosage: UNK
     Route: 048
     Dates: start: 20180927, end: 20180930
  39. PICOSULFATE NA [Concomitant]
     Active Substance: SODIUM PICOSULFATE
     Indication: CONSTIPATION
     Dosage: UNK UNK, AS NEEDED
     Route: 048
     Dates: start: 20180920, end: 20180920
  40. OMEPRAL TABLETS [Concomitant]
     Dosage: UNK
     Dates: start: 20180917, end: 20180925
  41. EDIROL [Concomitant]
     Active Substance: ELDECALCITOL
     Dosage: UNK
     Dates: start: 20180917, end: 20180925
  42. ZYVOX [Suspect]
     Active Substance: LINEZOLID
     Dosage: 600 MG, TWICE A DAY
     Dates: start: 20181007, end: 20181018
  43. RIFAMPICIN [Concomitant]
     Active Substance: RIFAMPIN
     Dosage: 300 MG, 1X/DAY
     Dates: start: 20180921, end: 20181024
  44. GLUCOSE OTSUKA [Concomitant]
     Dosage: UNK
     Route: 042
     Dates: start: 20180918, end: 20180925
  45. BFLUID [Concomitant]
     Active Substance: AMINO ACIDS\DEXTROSE\ELECTROLYTES NOS\VITAMINS
     Dosage: UNK
     Route: 041
     Dates: start: 20180917, end: 20180920
  46. PRIMPERAN INJECTION [Concomitant]
     Dosage: UNK
     Route: 042
     Dates: start: 20180918, end: 20180918
  47. FULCALIQ [Concomitant]
     Active Substance: AMINO ACIDS\CARBOHYDRATES\ELECTROLYTES NOS\VITAMINS
     Dosage: UNK
     Route: 041
     Dates: start: 20180921, end: 20180926
  48. XARELTO [Concomitant]
     Active Substance: RIVAROXABAN
     Dosage: UNK
     Route: 048
     Dates: start: 20180917, end: 20180925
  49. LOXOPROFEN NA [Concomitant]
     Active Substance: LOXOPROFEN SODIUM
     Dosage: UNK UNK, AS NEEDED
     Route: 048
     Dates: start: 20180917, end: 20180917
  50. ZINC OXIDE SIMPLE OINTMENT [Concomitant]
     Active Substance: ZINC OXIDE
     Dosage: UNK UNK, AS NEEDED
     Route: 061
     Dates: start: 20180927, end: 20180927
  51. ZYVOX [Suspect]
     Active Substance: LINEZOLID
     Dosage: 600 MG, TWICE A DAY
     Route: 042
     Dates: start: 20180918, end: 20180925
  52. CLINDAMYCIN. [Concomitant]
     Active Substance: CLINDAMYCIN
     Dosage: 600 MG, 2X/DAY
     Route: 042
     Dates: start: 20180918, end: 20181020
  53. XYLOCAINE HYDROCHLORIDE [Concomitant]
     Active Substance: LIDOCAINE HYDROCHLORIDE
     Dosage: UNK
     Route: 061
     Dates: start: 20180927, end: 20180927
  54. PRECEDEX [Concomitant]
     Active Substance: DEXMEDETOMIDINE HYDROCHLORIDE
     Dosage: UNK
     Route: 041
     Dates: start: 20180922, end: 20180925
  55. PICOSULFATE NA [Concomitant]
     Active Substance: SODIUM PICOSULFATE
     Dosage: UNK, AS NEEDED
     Dates: start: 20180924, end: 20180924
  56. NEW LECICARBON SUPP [Concomitant]
     Dosage: UNK
     Route: 061
     Dates: start: 20180920, end: 20180922
  57. FENTANYL INJECTION [Concomitant]
     Active Substance: FENTANYL
     Dosage: UNK
     Route: 041
     Dates: start: 20180923, end: 20180923
  58. MANNITOL-S INJECTION [Concomitant]
     Dosage: UNK
     Route: 041
     Dates: start: 20180918, end: 20180919
  59. PHYSIO140 INJECTION [Concomitant]
     Dosage: UNK
     Route: 041
     Dates: start: 20180920, end: 20180920
  60. ONOACT [Concomitant]
     Active Substance: LANDIOLOL HYDROCHLORIDE
     Dosage: UNK
     Route: 041
     Dates: start: 20180926, end: 20180930
  61. PARESAFE [Concomitant]
     Dosage: UNK
     Route: 041
     Dates: start: 20180917, end: 20180921
  62. ISOSORBIDE MONONITRATE. [Concomitant]
     Active Substance: ISOSORBIDE MONONITRATE
     Dosage: UNK
     Route: 048
     Dates: start: 20180917, end: 20180925
  63. KCL [Concomitant]
     Active Substance: POTASSIUM CHLORIDE
     Dosage: UNK
     Route: 041
     Dates: start: 20180918, end: 20180918
  64. ISOTONIC SODIUM CHLORIDE SOLUTION [Concomitant]
     Active Substance: SODIUM CHLORIDE
     Dosage: UNK
     Route: 041
     Dates: start: 20180917, end: 20180930
  65. PANTOSIN [Concomitant]
     Active Substance: PANTETHINE
     Dosage: UNK
     Route: 041
     Dates: start: 20180917, end: 20180930
  66. SODIUM CHLORIDE. [Concomitant]
     Active Substance: SODIUM CHLORIDE
     Dosage: UNK
     Route: 042
     Dates: start: 20180928, end: 20180930
  67. PHYSIO140 INJECTION [Concomitant]
     Dosage: UNK
     Route: 041
     Dates: start: 20180917, end: 20180918
  68. PRECEDEX [Concomitant]
     Active Substance: DEXMEDETOMIDINE HYDROCHLORIDE
     Dosage: UNK
     Route: 041
     Dates: start: 20180919, end: 20180920
  69. NICORANDIL [Concomitant]
     Active Substance: NICORANDIL
     Dosage: UNK
     Route: 048
     Dates: start: 20180917, end: 20180925
  70. AZOSEMIDE [Concomitant]
     Active Substance: AZOSEMIDE
     Dosage: UNK
     Route: 048
     Dates: start: 20180930, end: 20180930
  71. NEW LECICARBON SUPP [Concomitant]
     Dosage: UNK
     Route: 061
     Dates: start: 20180917, end: 20180917

REACTIONS (5)
  - Acute respiratory distress syndrome [Fatal]
  - Blood glucose increased [Unknown]
  - Pneumonia [Fatal]
  - Thrombocytopenia [Recovered/Resolved]
  - Sepsis [Fatal]

NARRATIVE: CASE EVENT DATE: 20180918
